FAERS Safety Report 7023606-2 (Version None)
Quarter: 2010Q3

REPORT INFORMATION
  Report Type: 
  Country: None (occurrence: None)
  Receive Date: 20100930
  Receipt Date: 20100921
  Transmission Date: 20110219
  Serious: Yes (Death)
  Sender: FDA-Public Use
  Company Number: JP-PFIZER INC-2010119908

PATIENT
  Age: 64 Year
  Sex: Female
  Weight: 31.8 kg

DRUGS (18)
  1. SILDENAFIL CITRATE [Suspect]
     Indication: PULMONARY ARTERIAL HYPERTENSION
     Dosage: 20 MG, 1X/DAY
     Route: 048
     Dates: start: 20100415, end: 20100518
  2. SILDENAFIL CITRATE [Suspect]
     Dosage: 20 MG, 1X/DAY
     Route: 048
     Dates: start: 20100520, end: 20100520
  3. LAC B [Concomitant]
     Dosage: UNK
     Route: 048
     Dates: start: 20100419, end: 20100427
  4. NEW LECICARBON [Concomitant]
     Dosage: UNK
     Route: 054
     Dates: start: 20100423
  5. DIOVAN HCT [Concomitant]
     Dosage: UNK
     Route: 048
     Dates: start: 20100501
  6. LOXOPROFEN SODIUM [Concomitant]
     Dosage: UNK
     Route: 048
     Dates: start: 20100501, end: 20100510
  7. REBAMIPIDE [Concomitant]
     Dosage: UNK
     Route: 048
     Dates: start: 20100501, end: 20100510
  8. OMEPRAL [Concomitant]
     Dosage: UNK
     Route: 048
     Dates: start: 20100501, end: 20100505
  9. BERIZYM [Concomitant]
     Dosage: UNK
     Route: 048
     Dates: start: 20100501, end: 20100505
  10. LOPEMIN [Concomitant]
     Dosage: UNK
     Route: 048
     Dates: start: 20100503, end: 20100507
  11. LACTOBACILLUS CASEI [Concomitant]
     Dosage: UNK
     Route: 048
     Dates: start: 20100502, end: 20100505
  12. PURSENNID [Concomitant]
     Route: 048
  13. ONE-ALPHA [Concomitant]
     Route: 048
  14. GASTER [Concomitant]
     Route: 048
  15. MUCOSTA [Concomitant]
     Route: 048
  16. PREDONINE [Concomitant]
     Route: 048
  17. VALSARTAN [Concomitant]
     Route: 048
  18. CEFZON [Concomitant]
     Dosage: UNK
     Route: 048
     Dates: start: 20100415, end: 20100417

REACTIONS (1)
  - DEATH [None]
